FAERS Safety Report 9754924 (Version 1)
Quarter: 2013Q4

REPORT INFORMATION
  Report Type: Spontaneous
  Country: US (occurrence: US)
  Receive Date: 20131213
  Receipt Date: 20131213
  Transmission Date: 20140711
  Serious: No
  Sender: FDA-Public Use
  Company Number: US-GLAXOSMITHKLINE-A1008682A

PATIENT
  Age: 57 Year
  Sex: Female

DRUGS (2)
  1. NICODERM CQ CLEAR 7MG [Suspect]
     Indication: EX-TOBACCO USER
     Dates: start: 20130113
  2. NICODERM CQ 21MG [Suspect]
     Dates: start: 20121216, end: 20121230

REACTIONS (3)
  - Drug ineffective [Not Recovered/Not Resolved]
  - Drug administration error [Unknown]
  - Discomfort [Not Recovered/Not Resolved]
